FAERS Safety Report 14091917 (Version 2)
Quarter: 2017Q4

REPORT INFORMATION
  Report Type: Report from Study
  Country: MX (occurrence: MX)
  Receive Date: 20171016
  Receipt Date: 20171102
  Transmission Date: 20180321
  Serious: Yes (Death, Other)
  Sender: FDA-Public Use
  Company Number: PHHY2017MX151523

PATIENT
  Sex: Female

DRUGS (3)
  1. TEGRETOL [Suspect]
     Active Substance: CARBAMAZEPINE
     Indication: SPINOCEREBELLAR ATAXIA
  2. TEGRETOL [Suspect]
     Active Substance: CARBAMAZEPINE
     Indication: SEIZURE
     Dosage: 4 DF, QD (1 IN THE MORNING, 1 AT MIDDAY AND 2 AT NIGHT)
     Route: 065
     Dates: start: 2009
  3. ATEMPERATOR [Concomitant]
     Indication: SEIZURE
     Dosage: 500 MG, TID
     Route: 048
     Dates: start: 2007

REACTIONS (5)
  - Aphasia [Fatal]
  - Seizure [Unknown]
  - Thrombosis [Fatal]
  - Spinocerebellar ataxia [Fatal]
  - Insomnia [Fatal]

NARRATIVE: CASE EVENT DATE: 2010
